FAERS Safety Report 9277957 (Version 1)
Quarter: 2013Q2

REPORT INFORMATION
  Report Type: Spontaneous
  Country: US (occurrence: None)
  Receive Date: 20130503
  Receipt Date: 20130503
  Transmission Date: 20140414
  Serious: Yes (Hospitalization)
  Sender: FDA-Public Use
  Company Number: None

PATIENT
  Sex: Female

DRUGS (9)
  1. MEANINGFUL BEAUTY DAY CREAM SPF 20 [Suspect]
     Indication: THERAPEUTIC SKIN CARE TOPICAL
  2. MEANINGFUL BEAUTY WRINKLE [Suspect]
     Dosage: DAILY, SKIN CARE
  3. MEANINGFUL BEAUTY ANTI-AGING NIGHT CREME CREAM [Suspect]
     Dosage: DAILY, SKIN CARE
  4. MEANINGFUL BEAUTY EYE SERUM [Suspect]
     Dosage: DAILY, SKIN CARE
  5. MEANINGFUL BEAUTY GLOWING SERUM [Suspect]
     Dosage: DAILY, SKIN CARE
  6. MEANINGFUL BEAUTY SOFTENING CLEANSER [Suspect]
     Dosage: DAILY, SKIN CARE
  7. MEANINGFUL BEAUTY EYE LIFTING CREAM [Suspect]
  8. MEANINGFUL BEAUTY FIRMING CHEST CREME [Suspect]
     Dosage: 2-3 TIMES A WEEK
  9. MEANINGFUL BEAUTY CLEANSING MASQUE [Suspect]

REACTIONS (2)
  - Chemical injury [None]
  - Pain [None]
